FAERS Safety Report 19284779 (Version 20)
Quarter: 2023Q4

REPORT INFORMATION
  Report Type: Report from Study
  Country: CA (occurrence: CA)
  Receive Date: 20210521
  Receipt Date: 20231214
  Transmission Date: 20240110
  Serious: Yes (Other)
  Sender: FDA-Public Use
  Company Number: PHHY2011CA29546

PATIENT
  Age: 62 Year
  Sex: Female

DRUGS (21)
  1. SANDOSTATIN LAR DEPOT [Suspect]
     Active Substance: OCTREOTIDE ACETATE
     Indication: Acromegaly
     Dosage: 10 MG, QMO (EVERY 4 WEEKS)
     Route: 030
     Dates: start: 20110309
  2. SANDOSTATIN LAR DEPOT [Suspect]
     Active Substance: OCTREOTIDE ACETATE
     Dosage: 30 MG, Q3W (EVERY 3 WEEKS)
     Route: 030
     Dates: start: 20110309
  3. SANDOSTATIN LAR DEPOT [Suspect]
     Active Substance: OCTREOTIDE ACETATE
     Dosage: 20 MG, QMO (EVERY 4 WEEKS)
     Route: 030
  4. SANDOSTATIN LAR DEPOT [Suspect]
     Active Substance: OCTREOTIDE ACETATE
     Dosage: 30 MG, Q3W (EVERY 3 WEEKS)
     Route: 030
  5. SANDOSTATIN LAR DEPOT [Suspect]
     Active Substance: OCTREOTIDE ACETATE
     Dosage: 20 MG, QMO (EVERY 4 WEEKS)
     Route: 030
     Dates: start: 20120411
  6. SANDOSTATIN LAR DEPOT [Suspect]
     Active Substance: OCTREOTIDE ACETATE
     Dosage: 30 MG, Q3W (EVERY 3 WEEKS)
     Route: 030
     Dates: start: 20231117
  7. SANDOZ FENOFIBRATE [Concomitant]
     Indication: Blood triglycerides abnormal
     Dosage: 160 MG, QD (GIVEN AS 1 CO 60 MG)
     Route: 065
     Dates: start: 20170413
  8. TRIGLYCERIDES,UNSPECIFIED LENGTH [Concomitant]
     Active Substance: TRIGLYCERIDES,UNSPECIFIED LENGTH
     Indication: Product used for unknown indication
     Dosage: UNK
     Route: 065
     Dates: start: 2013, end: 2017
  9. DIETHYLSTILBESTROL [Concomitant]
     Active Substance: DIETHYLSTILBESTROL
     Indication: Product used for unknown indication
     Dosage: UNK
     Route: 065
     Dates: start: 2018
  10. DIETHYLSTILBESTROL [Concomitant]
     Active Substance: DIETHYLSTILBESTROL
     Dosage: UNK
     Route: 065
  11. CRESTOR [Concomitant]
     Active Substance: ROSUVASTATIN CALCIUM
     Indication: Product used for unknown indication
     Dosage: UNK
     Route: 065
  12. CYPROTERONE ACETATE\ETHINYL ESTRADIOL [Concomitant]
     Active Substance: CYPROTERONE ACETATE\ETHINYL ESTRADIOL
     Indication: Product used for unknown indication
     Dosage: UNK
     Route: 065
  13. MEDROXYPROGESTERONE ACETATE [Concomitant]
     Active Substance: MEDROXYPROGESTERONE ACETATE
     Indication: Product used for unknown indication
     Dosage: 5 MG, (CYCLE 16 TO 30 ONLY)
     Route: 065
  14. PROVERA [Concomitant]
     Active Substance: MEDROXYPROGESTERONE ACETATE
     Indication: Product used for unknown indication
     Dosage: UNK
     Route: 065
  15. ESTRACE [Concomitant]
     Active Substance: ESTRADIOL
     Indication: Product used for unknown indication
     Dosage: UNK
     Route: 065
  16. ESTROGENS [Concomitant]
     Active Substance: ESTROGENS
     Indication: Product used for unknown indication
     Dosage: 3 MG, QD
     Route: 065
     Dates: start: 20180208
  17. ESTROGENS [Concomitant]
     Active Substance: ESTROGENS
     Dosage: 3 MG, QD
     Route: 065
     Dates: start: 20180212
  18. ESTROGENS [Concomitant]
     Active Substance: ESTROGENS
     Dosage: UNK
     Route: 065
     Dates: start: 20220225
  19. ROSUVASTATIN [Concomitant]
     Active Substance: ROSUVASTATIN
     Indication: Product used for unknown indication
     Dosage: UNK
     Route: 048
  20. JARDIANCE [Concomitant]
     Active Substance: EMPAGLIFLOZIN
     Indication: Product used for unknown indication
     Dosage: UNK
     Route: 048
  21. CEFIXIME [Concomitant]
     Active Substance: CEFIXIME
     Indication: Product used for unknown indication
     Dosage: UNK
     Route: 048

REACTIONS (61)
  - Blood pressure increased [Unknown]
  - Nephrolithiasis [Unknown]
  - Metastases to liver [Unknown]
  - Cholelithiasis obstructive [Unknown]
  - Pyelonephritis [Unknown]
  - Lipids increased [Unknown]
  - Acarodermatitis [Unknown]
  - Erythema [Recovering/Resolving]
  - Meniscus injury [Unknown]
  - Pruritus [Recovering/Resolving]
  - Tendonitis [Unknown]
  - Tendon pain [Unknown]
  - Somnolence [Unknown]
  - Migraine [Unknown]
  - Oedema peripheral [Unknown]
  - Dermatitis [Unknown]
  - Mood swings [Unknown]
  - Plantar fasciitis [Unknown]
  - Joint dislocation [Unknown]
  - Hyperaesthesia [Unknown]
  - Sneezing [Unknown]
  - Myalgia [Unknown]
  - Gastrointestinal disorder [Unknown]
  - Ligament sprain [Unknown]
  - Influenza [Unknown]
  - Pyrexia [Unknown]
  - Sputum discoloured [Unknown]
  - Vomiting [Unknown]
  - Nasopharyngitis [Not Recovered/Not Resolved]
  - Oropharyngeal pain [Unknown]
  - Arthralgia [Unknown]
  - Arthritis [Unknown]
  - Epicondylitis [Not Recovered/Not Resolved]
  - Eye infection [Unknown]
  - Synovial cyst [Unknown]
  - Blood growth hormone abnormal [Unknown]
  - Bursitis [Unknown]
  - Calcinosis [Unknown]
  - Insulin-like growth factor increased [Not Recovered/Not Resolved]
  - Back pain [Recovered/Resolved]
  - Back injury [Recovered/Resolved]
  - Vaginal haemorrhage [Unknown]
  - Urinary tract infection [Unknown]
  - Insomnia [Recovered/Resolved]
  - Cardiac murmur [Unknown]
  - Heart valve calcification [Unknown]
  - Blood growth hormone increased [Unknown]
  - Cough [Unknown]
  - COVID-19 [Unknown]
  - Rhinorrhoea [Unknown]
  - Glycosylated haemoglobin increased [Unknown]
  - Cholelithiasis [Unknown]
  - Blood glucose abnormal [Recovering/Resolving]
  - Fatigue [Unknown]
  - Hyperglycaemia [Unknown]
  - Blood triglycerides abnormal [Unknown]
  - Dyspepsia [Unknown]
  - Diarrhoea [Unknown]
  - Nausea [Recovered/Resolved]
  - Injection site pain [Recovering/Resolving]
  - Inappropriate schedule of product administration [Unknown]

NARRATIVE: CASE EVENT DATE: 20130909
